FAERS Safety Report 7572654-2 (Version None)
Quarter: 2011Q2

REPORT INFORMATION
  Report Type: 
  Country: None (occurrence: None)
  Receive Date: 20110627
  Receipt Date: 20091124
  Transmission Date: 20111010
  Serious: No
  Sender: FDA-Public Use
  Company Number: 2009BI038612

PATIENT
  Age: 54 Year
  Sex: Female

DRUGS (1)
  1. TYSABRI [Suspect]
     Indication: MULTIPLE SCLEROSIS
     Route: 042
     Dates: start: 20070524

REACTIONS (8)
  - AGRAPHIA [None]
  - ABASIA [None]
  - VISUAL IMPAIRMENT [None]
  - BALANCE DISORDER [None]
  - FALL [None]
  - DRUG INEFFECTIVE [None]
  - PERIORBITAL HAEMATOMA [None]
  - MUSCULOSKELETAL DISORDER [None]
